FAERS Safety Report 9056265 (Version 1)
Quarter: 2013Q1

REPORT INFORMATION
  Report Type: Report from Study
  Country: BE (occurrence: DE)
  Receive Date: 20130205
  Receipt Date: 20130205
  Transmission Date: 20140127
  Serious: Yes (Life-Threatening)
  Sender: FDA-Public Use
  Company Number: BE-009507513-1302DEU000140

PATIENT
  Age: 71 Year
  Sex: Male

DRUGS (2)
  1. INVANZ [Suspect]
     Indication: ABDOMINAL ABSCESS
     Dosage: UNK
     Route: 042
     Dates: start: 20080429, end: 20080429
  2. BISOPROLOL [Concomitant]
     Dosage: UNK

REACTIONS (1)
  - Atrial fibrillation [Recovered/Resolved]
